FAERS Safety Report 16428423 (Version 1)
Quarter: 2019Q2

REPORT INFORMATION
  Report Type: Report from Study
  Country: US (occurrence: US)
  Receive Date: 20190613
  Receipt Date: 20190613
  Transmission Date: 20190711
  Serious: Yes (Hospitalization)
  Sender: FDA-Public Use
  Company Number: US-ACTELION-A-NJ2019-187519

PATIENT
  Age: 47 Year
  Sex: Female
  Weight: 66.21 kg

DRUGS (4)
  1. WARFARIN [Concomitant]
     Active Substance: WARFARIN
  2. REVATIO [Concomitant]
     Active Substance: SILDENAFIL CITRATE
  3. VENTAVIS [Suspect]
     Active Substance: ILOPROST
     Indication: PULMONARY ARTERIAL HYPERTENSION
     Dosage: 5.0 MCG, 6 TO 9 TIMES PER DAY
     Route: 055
  4. NIFEDIPINE. [Concomitant]
     Active Substance: NIFEDIPINE

REACTIONS (2)
  - Thyroid operation [Unknown]
  - Cough [Unknown]

NARRATIVE: CASE EVENT DATE: 201902
